FAERS Safety Report 11760147 (Version 2)
Quarter: 2016Q1

REPORT INFORMATION
  Report Type: Spontaneous
  Country: US (occurrence: US)
  Receive Date: 20151120
  Receipt Date: 20160211
  Transmission Date: 20160525
  Serious: No
  Sender: FDA-Public Use
  Company Number: US-ELI_LILLY_AND_COMPANY-US201511005108

PATIENT
  Age: 82 Year
  Sex: Male

DRUGS (3)
  1. HUMALOG [Suspect]
     Active Substance: INSULIN LISPRO
     Indication: TYPE 2 DIABETES MELLITUS
     Dosage: 5 U, SINGLE
     Route: 065
     Dates: start: 20151112
  2. HUMALOG [Suspect]
     Active Substance: INSULIN LISPRO
     Dosage: 7 U, PRN
     Route: 065
  3. TOUJEO [Concomitant]
     Active Substance: INSULIN GLARGINE

REACTIONS (1)
  - Blood glucose increased [Unknown]

NARRATIVE: CASE EVENT DATE: 20151112
